FAERS Safety Report 12094761 (Version 1)
Quarter: 2016Q1

REPORT INFORMATION
  Report Type: Spontaneous
  Country: AU (occurrence: AU)
  Receive Date: 20160219
  Receipt Date: 20160219
  Transmission Date: 20160526
  Serious: Yes (Other)
  Sender: FDA-Public Use
  Company Number: AU-ABBVIE-16P-008-1563898-00

PATIENT
  Age: 44 Year
  Sex: Female
  Weight: 64 kg

DRUGS (1)
  1. CLARITHROMYCIN. [Suspect]
     Active Substance: CLARITHROMYCIN
     Indication: PRODUCT USED FOR UNKNOWN INDICATION
     Route: 065
     Dates: start: 20150427, end: 20150428

REACTIONS (1)
  - Pharyngeal oedema [Recovering/Resolving]

NARRATIVE: CASE EVENT DATE: 20150428
